FAERS Safety Report 20939173 (Version 1)
Quarter: 2022Q2

REPORT INFORMATION
  Report Type: Spontaneous
  Country: US (occurrence: None)
  Receive Date: 20220609
  Receipt Date: 20220609
  Transmission Date: 20220721
  Serious: Yes (Hospitalization, Disabling)
  Sender: FDA-Public Use
  Company Number: None

PATIENT
  Age: 25 Year
  Sex: Female

DRUGS (2)
  1. VALIUM [Suspect]
     Active Substance: DIAZEPAM
     Indication: Anxiety
  2. DIAZEPAM [Concomitant]
     Active Substance: DIAZEPAM

REACTIONS (34)
  - Nervous system disorder [None]
  - Physical disability [None]
  - Impaired work ability [None]
  - Drug withdrawal syndrome [None]
  - Memory impairment [None]
  - Depersonalisation/derealisation disorder [None]
  - Derealisation [None]
  - Depression [None]
  - Insomnia [None]
  - Nausea [None]
  - Anxiety [None]
  - Panic attack [None]
  - Paranoia [None]
  - Intrusive thoughts [None]
  - Muscle spasms [None]
  - Neuralgia [None]
  - Sensory disturbance [None]
  - Food allergy [None]
  - Allergy to chemicals [None]
  - Cognitive disorder [None]
  - Hyperacusis [None]
  - Photophobia [None]
  - Parosmia [None]
  - Myalgia [None]
  - Arthralgia [None]
  - Rash [None]
  - Pruritus [None]
  - Muscle twitching [None]
  - Dyskinesia [None]
  - Dyspnoea [None]
  - Stress [None]
  - Dystonia [None]
  - Musculoskeletal disorder [None]
  - Pain [None]
